FAERS Safety Report 19479362 (Version 1)
Quarter: 2021Q2

REPORT INFORMATION
  Report Type: Spontaneous
  Country: DE (occurrence: DE)
  Receive Date: 20210630
  Receipt Date: 20210630
  Transmission Date: 20210717
  Serious: Yes (Hospitalization, Other)
  Sender: FDA-Public Use
  Company Number: DE-ELI_LILLY_AND_COMPANY-DE202106012143

PATIENT
  Age: 68 Year
  Sex: Male
  Weight: 70 kg

DRUGS (15)
  1. FOLVERLAN [Concomitant]
     Active Substance: FOLIC ACID
     Dosage: 0.4 MG, 1?0?0?0, TABLETTEN
     Route: 048
  2. PREGABALIN. [Concomitant]
     Active Substance: PREGABALIN
     Dosage: 150 MG, 1?0?1?0, KAPSELN
     Route: 048
  3. MCP AL [Concomitant]
     Dosage: 10 MG, 1?0?1?0, TABLETTEN
     Route: 048
  4. PANTOPRAZOL [PANTOPRAZOLE] [Concomitant]
     Active Substance: PANTOPRAZOLE
     Dosage: 20 MG, 1?0?1?0, TABLETTEN
     Route: 048
  5. MIRTAZAPIN [Concomitant]
     Active Substance: MIRTAZAPINE
     Dosage: 15 MG, 0?0?0?1, TABLETTEN
     Route: 048
  6. NOVAMINSULFON 1 A PHARMA [Concomitant]
     Active Substance: METAMIZOLE SODIUM
     Dosage: 500 MG, 40?40?40?40, TROPFEN
     Route: 048
  7. OXYCODON COMP 1 A PHARMA [Concomitant]
     Dosage: 5|10 MG, 0?0?0?1, RETARD?TABLETTEN
     Route: 048
  8. PEMETREXED. [Suspect]
     Active Substance: PEMETREXED
     Indication: PRODUCT USED FOR UNKNOWN INDICATION
     Dosage: REDUZIERTE DOSIS NACH SCHEMA, INJEKTIONS?/INFUSIONSL?SUNG
     Route: 042
  9. OXYCODON [Concomitant]
     Active Substance: OXYCODONE
     Dosage: 20 MG, 1?1?0?1, RETARD?TABLETTEN
     Route: 048
  10. FERRO SANOL [Concomitant]
     Active Substance: FERROUS GLYCINE SULFATE
     Dosage: 40 MG, 1?0?1?0, DRAGEES
     Route: 048
  11. OXYCODON [Concomitant]
     Active Substance: OXYCODONE
     Dosage: 5 MG, BEI BEDARF, RETARD?TABLETTEN
     Route: 048
  12. CISPLATIN. [Suspect]
     Active Substance: CISPLATIN
     Indication: PRODUCT USED FOR UNKNOWN INDICATION
     Dosage: NACH SCHEMA, INJEKTIONS?/INFUSIONSL?SUNG
     Route: 042
  13. VENLAFAXIN [Concomitant]
     Active Substance: VENLAFAXINE HYDROCHLORIDE
     Dosage: 75 MG, 1?0?0?0, KAPSELN
     Route: 048
  14. ETORICOX ABZ [Concomitant]
     Dosage: 60 MG, 0?1?0?0, TABLETTEN
     Route: 048
  15. METOPROLOL. [Concomitant]
     Active Substance: METOPROLOL
     Dosage: 47.5 MG, 1?0?0?0, TABLETTEN
     Route: 048

REACTIONS (6)
  - Haematochezia [Unknown]
  - General physical health deterioration [Unknown]
  - Nausea [Unknown]
  - Asthenia [Unknown]
  - Diarrhoea [Unknown]
  - Decreased appetite [Unknown]
